FAERS Safety Report 5028883-5 (Version None)
Quarter: 2006Q2

REPORT INFORMATION
  Report Type: 
  Country: None (occurrence: None)
  Receive Date: 20060501
  Receipt Date: 20060215
  Transmission Date: 20061013
  Serious: No
  Sender: FDA-Public Use
  Company Number: 200611639US

PATIENT
  Age: 70 Year
  Sex: Female
  Weight: 56.36 kg

DRUGS (5)
  1. KETEK [Suspect]
     Indication: SINUSITIS
     Dosage: 800 MG ONCE PO
     Route: 048
     Dates: start: 20060214, end: 20060214
  2. AMIODARONE HCL [Concomitant]
  3. LORAZEPAM [Concomitant]
  4. ZYPAN [Concomitant]
  5. UNKNOWN MEDICATION [Concomitant]

REACTIONS (3)
  - DIPLOPIA [None]
  - PALPITATIONS [None]
  - VISION BLURRED [None]
